FAERS Safety Report 12728887 (Version 2)
Quarter: 2016Q4

REPORT INFORMATION
  Report Type: Spontaneous
  Country: US (occurrence: US)
  Receive Date: 20160909
  Receipt Date: 20161017
  Transmission Date: 20170207
  Serious: No
  Sender: FDA-Public Use
  Company Number: US-PFIZER INC-2016422163

PATIENT
  Age: 48 Year
  Sex: Female

DRUGS (2)
  1. LACTOSE [Suspect]
     Active Substance: LACTOSE
     Dosage: UNK
  2. XANAX XR [Suspect]
     Active Substance: ALPRAZOLAM
     Indication: GENERALISED ANXIETY DISORDER
     Dosage: 0.5 MG, UNK
     Dates: start: 20160905, end: 20160905

REACTIONS (2)
  - Gastric disorder [Recovered/Resolved]
  - Reaction to drug excipients [Recovered/Resolved]

NARRATIVE: CASE EVENT DATE: 20160905
